FAERS Safety Report 5374198-5 (Version None)
Quarter: 2007Q2

REPORT INFORMATION
  Report Type: 
  Country: None (occurrence: None)
  Receive Date: 20070627
  Receipt Date: 20061019
  Transmission Date: 20071010
  Serious: Yes (Death)
  Sender: FDA-Public Use
  Company Number: 468217

PATIENT
  Age: 64 Year
  Sex: Male

DRUGS (1)
  1. XELODA [Suspect]
     Indication: COLON CANCER METASTATIC
     Dates: start: 20060927, end: 20061005

REACTIONS (3)
  - COLON CANCER [None]
  - COLON CANCER METASTATIC [None]
  - METASTASES TO LIVER [None]
